FAERS Safety Report 23327887 (Version 1)
Quarter: 2023Q4

REPORT INFORMATION
  Report Type: Report from Study
  Country: US (occurrence: US)
  Receive Date: 20231221
  Receipt Date: 20231221
  Transmission Date: 20240109
  Serious: Yes (Hospitalization)
  Sender: FDA-Public Use
  Company Number: US-002147023-NVSC2023US270639

PATIENT
  Age: 1 Year
  Sex: Male
  Weight: 10.7 kg

DRUGS (1)
  1. ZOLGENSMA [Suspect]
     Active Substance: ONASEMNOGENE ABEPARVOVEC-XIOI
     Indication: Spinal muscular atrophy
     Dosage: 35.8 ML
     Route: 042
     Dates: start: 20201119, end: 20201119

REACTIONS (1)
  - Spinal cord oedema [Recovered/Resolved]

NARRATIVE: CASE EVENT DATE: 20220224
